FAERS Safety Report 16073946 (Version 2)
Quarter: 2019Q2

REPORT INFORMATION
  Report Type: Spontaneous
  Country: US (occurrence: US)
  Receive Date: 20190314
  Receipt Date: 20190604
  Transmission Date: 20190711
  Serious: No
  Sender: FDA-Public Use
  Company Number: US-PTC THERAPEUTICS, INC.-US-2019PTC000144

PATIENT
  Age: 9 Year
  Sex: Male

DRUGS (3)
  1. EMFLAZA [Suspect]
     Active Substance: DEFLAZACORT
     Indication: MUSCULAR DYSTROPHY
     Dosage: 0.75 ML, QD
     Route: 048
     Dates: start: 20170921
  2. EMFLAZA [Suspect]
     Active Substance: DEFLAZACORT
     Dosage: 0.75 ML, QD
     Route: 048
     Dates: start: 20171117
  3. EMFLAZA [Suspect]
     Active Substance: DEFLAZACORT
     Dosage: 0.75 ML, QD
     Route: 048

REACTIONS (3)
  - Abdominal pain upper [Not Recovered/Not Resolved]
  - Peptic ulcer [Not Recovered/Not Resolved]
  - Malaise [Unknown]

NARRATIVE: CASE EVENT DATE: 201812
